FAERS Safety Report 7435980-3 (Version None)
Quarter: 2011Q2

REPORT INFORMATION
  Report Type: 
  Country: None (occurrence: None)
  Receive Date: 20110425
  Receipt Date: 20110412
  Transmission Date: 20111010
  Serious: Yes (Death)
  Sender: FDA-Public Use
  Company Number: US-CELGENEUS-163-21880-11022222

PATIENT
  Sex: Female

DRUGS (11)
  1. REVLIMID [Suspect]
     Dosage: 5 MILLIGRAM
     Route: 048
     Dates: start: 20110101
  2. MULTI-VITAMINS [Concomitant]
     Dosage: 1 TABLET
     Route: 048
  3. CALCIUM WITH VITAMIN D [Concomitant]
     Dosage: 600-125MG
     Route: 048
  4. VALTREX [Concomitant]
     Dosage: 1000 MILLIGRAM
     Route: 048
  5. HYDREA [Concomitant]
     Dosage: 500 MILLIGRAM
     Route: 048
  6. ARANESP [Concomitant]
     Route: 065
  7. TYLENOL PM [Concomitant]
     Dosage: 500-25MG
     Route: 048
  8. MIRALAX [Concomitant]
     Dosage: 17 GRAM
     Route: 048
  9. COMPAZINE [Concomitant]
     Indication: NAUSEA
     Dosage: 10 MILLIGRAM
     Route: 048
  10. VICODIN [Concomitant]
     Indication: PAIN
     Dosage: 5-500MG
     Route: 048
  11. FLEXERIL [Concomitant]
     Dosage: 5 MILLIGRAM
     Route: 048

REACTIONS (1)
  - MYELODYSPLASTIC SYNDROME [None]
